FAERS Safety Report 8455499-0 (Version None)
Quarter: 2012Q2

REPORT INFORMATION
  Report Type: 
  Country: None (occurrence: None)
  Receive Date: 20120621
  Receipt Date: 20120612
  Transmission Date: 20120825
  Serious: Yes (Hospitalization)
  Sender: FDA-Public Use
  Company Number: JP-ASTRAZENECA-2012SE40914

PATIENT
  Age: 0 Year
  Sex: Female
  Weight: 1 kg

DRUGS (7)
  1. PREDNISOLONE [Suspect]
     Route: 064
  2. HYDRALAZINE HYDROCHLORIDE [Suspect]
     Route: 064
  3. HYDRALAZINE HYDROCHLORIDE [Suspect]
     Route: 064
  4. CANDESARTAN CILEXETIL [Suspect]
     Route: 064
  5. AMLODIPINE BESYLATE [Suspect]
     Route: 064
  6. NIFEDIPINE [Suspect]
     Route: 064
  7. TENORMIN [Suspect]
     Route: 064

REACTIONS (3)
  - LOW BIRTH WEIGHT BABY [None]
  - FOETAL GROWTH RESTRICTION [None]
  - NEONATAL RESPIRATORY DISTRESS SYNDROME [None]
